FAERS Safety Report 4847569-0 (Version None)
Quarter: 2005Q4

REPORT INFORMATION
  Report Type: 
  Country: None (occurrence: None)
  Receive Date: 20051205
  Receipt Date: 20051125
  Transmission Date: 20060501
  Serious: Yes (Hospitalization)
  Sender: FDA-Public Use
  Company Number: VISP-NO-0511S-0599

PATIENT
  Age: 70 Year
  Sex: Female
  Weight: 57 kg

DRUGS (4)
  1. VISIPAQUE [Suspect]
     Indication: PANCREATIC DISORDER
     Dosage: 100 ML, SINGLE DOSE, I.V.
     Route: 042
     Dates: start: 20050909, end: 20050909
  2. AMARYL [Concomitant]
  3. NORFLOXACIN [Concomitant]
  4. TERBINAFINE HYDROCHLORIDE (LAMISIL) [Concomitant]

REACTIONS (3)
  - NAUSEA [None]
  - NEPHRITIS INTERSTITIAL [None]
  - RENAL IMPAIRMENT [None]
